FAERS Safety Report 25537008 (Version 2)
Quarter: 2025Q3

REPORT INFORMATION
  Report Type: Report from Study
  Country: EU (occurrence: EU)
  Receive Date: 20250710
  Receipt Date: 20250731
  Transmission Date: 20251021
  Serious: Yes (Other)
  Sender: UCB
  Company Number: EU-UCBSA-2025025501

PATIENT
  Sex: Female
  Weight: 70 kg

DRUGS (2)
  1. ROZANOLIXIZUMAB [Suspect]
     Active Substance: ROZANOLIXIZUMAB
     Indication: Myasthenia gravis
     Dosage: 420 MILLIGRAM, WEEKLY (QW)
     Route: 058
     Dates: start: 20250423
  2. MYCOPHENOLATE MOFETIL [Concomitant]
     Active Substance: MYCOPHENOLATE MOFETIL
     Indication: Myasthenia gravis
     Dosage: 500 MILLIGRAM, 2X/DAY (BID)
     Route: 048
     Dates: start: 202504

REACTIONS (10)
  - Myasthenia gravis [Unknown]
  - Headache [Recovered/Resolved]
  - Diarrhoea [Recovered/Resolved]
  - Malaise [Recovered/Resolved]
  - Asthenia [Recovered/Resolved]
  - Photophobia [Recovered/Resolved]
  - Disturbance in attention [Not Recovered/Not Resolved]
  - Gastrointestinal infection [Recovered/Resolved]
  - Loss of personal independence in daily activities [Unknown]
  - Drug ineffective [Unknown]

NARRATIVE: CASE EVENT DATE: 20250101
